FAERS Safety Report 5918343-9 (Version None)
Quarter: 2008Q4

REPORT INFORMATION
  Report Type: 
  Country: None (occurrence: None)
  Receive Date: 20081010
  Receipt Date: 20080828
  Transmission Date: 20090506
  Serious: Yes (Hospitalization)
  Sender: FDA-Public Use
  Company Number: 2008PL000147

PATIENT
  Age: 70 Year
  Sex: Male

DRUGS (6)
  1. ZYLOPRIM [Suspect]
  2. IRBESARTAN [Concomitant]
  3. ATORVASTATIN CALCIUM [Concomitant]
  4. AMLODIPINE [Concomitant]
  5. ASPIRIN [Concomitant]
  6. MULTI-VITAMIN [Concomitant]

REACTIONS (4)
  - ABNORMAL BEHAVIOUR [None]
  - COGNITIVE DISORDER [None]
  - ENCEPHALITIS ENTEROVIRAL [None]
  - SPEECH DISORDER [None]
